FAERS Safety Report 8249394-X (Version None)
Quarter: 2012Q2

REPORT INFORMATION
  Report Type: 
  Country: None (occurrence: None)
  Receive Date: 20120402
  Receipt Date: 20120321
  Transmission Date: 20120825
  Serious: Yes (Other)
  Sender: FDA-Public Use
  Company Number: BR-JNJFOC-20120311878

PATIENT
  Sex: Female
  Weight: 14 kg

DRUGS (3)
  1. TYLENOL (CAPLET) [Suspect]
     Indication: PYREXIA
     Route: 048
     Dates: start: 20120203, end: 20120203
  2. TYLENOL (CAPLET) [Suspect]
     Route: 048
  3. ANTIBIOTIC (UNSPECIFIED) [Concomitant]
     Indication: PRODUCT USED FOR UNKNOWN INDICATION
     Route: 065

REACTIONS (1)
  - HYPERSENSITIVITY [None]
